FAERS Safety Report 20431723 (Version 1)
Quarter: 2022Q1

REPORT INFORMATION
  Report Type: Report from Study
  Country: US (occurrence: US)
  Receive Date: 20220204
  Receipt Date: 20220204
  Transmission Date: 20220423
  Serious: Yes (Hospitalization)
  Sender: FDA-Public Use
  Company Number: US-SERVIER-S22000902

PATIENT

DRUGS (6)
  1. PEGASPARGASE [Suspect]
     Active Substance: PEGASPARGASE
     Indication: B-cell type acute leukaemia
     Dosage: 2500 IU/M2, ON D15 AND D43
     Route: 042
     Dates: start: 20211223
  2. TN UNSPECIFIED [Concomitant]
     Indication: B-cell type acute leukaemia
     Dosage: 95 MG, BID, D1-D14
     Route: 048
     Dates: start: 20211207
  3. TN UNSPECIFIED [Concomitant]
     Indication: B-cell type acute leukaemia
     Dosage: 2 MG, D15 AND D22
     Route: 042
     Dates: start: 20211220
  4. TN UNSPECIFIED [Concomitant]
     Indication: Product used for unknown indication
     Dosage: UNK
     Route: 065
  5. TN UNSPECIFIED [Concomitant]
     Indication: Product used for unknown indication
     Dosage: UNK
     Route: 065
  6. TN UNSPECIFIED [Concomitant]
     Indication: Product used for unknown indication
     Dosage: UNK
     Route: 065

REACTIONS (2)
  - Pyrexia [Recovered/Resolved]
  - Vomiting [Recovered/Resolved]

NARRATIVE: CASE EVENT DATE: 20211223
